FAERS Safety Report 22355050 (Version 1)
Quarter: 2023Q2

REPORT INFORMATION
  Report Type: Spontaneous
  Country: DE (occurrence: DE)
  Receive Date: 20230523
  Receipt Date: 20230523
  Transmission Date: 20230722
  Serious: Yes (Hospitalization, Other)
  Sender: FDA-Public Use
  Company Number: DE-BAYER-2023A069516

PATIENT
  Age: 79 Year
  Sex: Female

DRUGS (2)
  1. RIVAROXABAN [Suspect]
     Active Substance: RIVAROXABAN
     Indication: Ventricular fibrillation
     Dosage: 15 MG
     Route: 048
  2. FUROSEMIDE [Concomitant]
     Active Substance: FUROSEMIDE

REACTIONS (10)
  - Ventricular fibrillation [Unknown]
  - Embolism [Unknown]
  - Malaise [Unknown]
  - Epistaxis [Unknown]
  - Eye haemorrhage [Unknown]
  - Gingival bleeding [Unknown]
  - Arrhythmia [Unknown]
  - Headache [Unknown]
  - Joint swelling [Unknown]
  - Pain in extremity [Unknown]

NARRATIVE: CASE EVENT DATE: 20230516
